FAERS Safety Report 4327600-1 (Version None)
Quarter: 2004Q1

REPORT INFORMATION
  Report Type: 
  Country: None (occurrence: None)
  Receive Date: 20040330
  Receipt Date: 20040330
  Transmission Date: 20041129
  Serious: Yes (Other)
  Sender: FDA-Public Use
  Company Number: None

PATIENT
  Age: 67 Year
  Sex: Male
  Weight: 86.1834 kg

DRUGS (4)
  1. AZOPT [Suspect]
     Indication: GLAUCOMA
     Dosage: 1 DROP BID OPHTHALMIC
     Route: 047
     Dates: start: 20000101, end: 20030115
  2. ACCUPRIL [Concomitant]
  3. ALPHAGAN [Concomitant]
  4. XALATAN [Concomitant]

REACTIONS (4)
  - HYPERSENSITIVITY [None]
  - PRURITUS [None]
  - RASH [None]
  - SCLERAL DISORDER [None]
